FAERS Safety Report 9486395 (Version 1)
Quarter: 2013Q3

REPORT INFORMATION
  Report Type: Spontaneous
  Country: GB (occurrence: None)
  Receive Date: 20130823
  Receipt Date: 20130823
  Transmission Date: 20140515
  Serious: Yes (Hospitalization, Other)
  Sender: FDA-Public Use
  Company Number: 2013AP007308

PATIENT
  Age: 49 Year
  Sex: Male

DRUGS (10)
  1. OMEPRAZOLE(OMEPRAZOLE) [Suspect]
     Dates: start: 20130707
  2. AMISULPRIDE [Suspect]
     Dates: start: 20130707
  3. ACAMPROSATE [Suspect]
     Dates: start: 20130707
  4. ASPIRIN (ACETYLSALICYLIC ACID) [Suspect]
  5. ATORVASTATIN [Suspect]
     Dates: start: 20130707
  6. CITALOPRAM(CITALOPRAM) [Suspect]
     Dates: start: 20130707
  7. METFORMIN (METFORMIN) [Suspect]
     Dates: start: 20130707
  8. ZAPONEX [Suspect]
     Route: 048
     Dates: start: 20110802, end: 201307
  9. CLOZARIL [Concomitant]
  10. NEUTROPHIL [Concomitant]

REACTIONS (3)
  - Cardiovascular disorder [None]
  - Overdose [None]
  - Hypoventilation [None]
